FAERS Safety Report 7075295-9 (Version None)
Quarter: 2010Q4

REPORT INFORMATION
  Report Type: 
  Country: None (occurrence: None)
  Receive Date: 20101030
  Receipt Date: 20100907
  Transmission Date: 20110411
  Serious: No
  Sender: FDA-Public Use
  Company Number: US-WYE-H16927710

PATIENT
  Sex: Male

DRUGS (3)
  1. TORISEL [Suspect]
     Indication: RENAL CANCER
     Dosage: NOT SPECIFIED
     Route: 042
     Dates: start: 20100401
  2. FISH OIL, HYDROGENATED [Concomitant]
  3. GEMFIBROZIL [Concomitant]

REACTIONS (1)
  - HYPERTRIGLYCERIDAEMIA [None]
